FAERS Safety Report 25059184 (Version 1)
Quarter: 2025Q1

REPORT INFORMATION
  Report Type: Spontaneous
  Country: US (occurrence: None)
  Receive Date: 20250310
  Receipt Date: 20250310
  Transmission Date: 20250408
  Serious: No
  Sender: FDA-CTU
  Company Number: None

PATIENT
  Sex: Female

DRUGS (1)
  1. BALVERSA [Suspect]
     Active Substance: ERDAFITINIB
     Indication: Bladder cancer
     Dosage: 3MG ONCE DAILY ORAL
     Route: 049
     Dates: start: 202404

REACTIONS (6)
  - Influenza [None]
  - Fatigue [None]
  - Condition aggravated [None]
  - Dehydration [None]
  - Fatigue [None]
  - Headache [None]
